FAERS Safety Report 18399989 (Version 4)
Quarter: 2021Q3

REPORT INFORMATION
  Report Type: Report from Study
  Country: BE (occurrence: BE)
  Receive Date: 20201019
  Receipt Date: 20210916
  Transmission Date: 20211014
  Serious: Yes (Other)
  Sender: FDA-Public Use
  Company Number: BE-ROCHE-2369432

PATIENT
  Age: 71 Year
  Sex: Female

DRUGS (2)
  1. ATEZOLIZUMAB. [Suspect]
     Active Substance: ATEZOLIZUMAB
     Indication: CERVIX CARCINOMA RECURRENT
     Dosage: MONOTHERAPY SINCE 01/JUL/2019
     Route: 042
  2. DOXORUBICIN [Suspect]
     Active Substance: DOXORUBICIN
     Indication: CERVIX CARCINOMA RECURRENT
     Dosage: LAST DOSE: 11/JUN/2019
     Route: 042

REACTIONS (18)
  - Onychoclasis [Not Recovered/Not Resolved]
  - Eye pruritus [Not Recovered/Not Resolved]
  - Balance disorder [Recovered/Resolved]
  - Acute kidney injury [Recovered/Resolved]
  - Dry mouth [Recovered/Resolved]
  - Breast pain [Recovered/Resolved]
  - Pelvi-ureteric obstruction [Not Recovered/Not Resolved]
  - Hypokalaemia [Recovered/Resolved]
  - Pruritus [Recovered/Resolved]
  - Dysgeusia [Recovered/Resolved]
  - Escherichia infection [Recovered/Resolved]
  - Fatigue [Recovered/Resolved]
  - Dermal cyst [Recovered/Resolved]
  - Rhinitis allergic [Recovered/Resolved]
  - Neuropathy peripheral [Not Recovered/Not Resolved]
  - Eye irritation [Recovered/Resolved]
  - Decreased appetite [Recovered/Resolved]
  - Limb injury [Recovered/Resolved]

NARRATIVE: CASE EVENT DATE: 20190318
